FAERS Safety Report 21783900 (Version 1)
Quarter: 2022Q4

REPORT INFORMATION
  Report Type: Spontaneous
  Country: US (occurrence: US)
  Receive Date: 20221227
  Receipt Date: 20221227
  Transmission Date: 20230113
  Serious: Yes (Hospitalization)
  Sender: FDA-Public Use
  Company Number: US-MYLANLABS-2022M1145509

PATIENT
  Age: 70 Year
  Sex: Female

DRUGS (2)
  1. LITHIUM [Suspect]
     Active Substance: LITHIUM
     Indication: Bipolar I disorder
     Dosage: 300 MILLIGRAM, TID (THREE TIMES A DAY)
     Route: 048
  2. LEVOTHYROXINE [Concomitant]
     Active Substance: LEVOTHYROXINE
     Indication: Hypothyroidism
     Dosage: 75 MICROGRAM, QD
     Route: 048

REACTIONS (4)
  - Hyperparathyroidism primary [Unknown]
  - Hypercalcaemia [Recovered/Resolved]
  - Osteopenia [Unknown]
  - Parathyroid tumour benign [Recovered/Resolved]
